FAERS Safety Report 5702362-1 (Version None)
Quarter: 2008Q2

REPORT INFORMATION
  Report Type: 
  Country: None (occurrence: None)
  Receive Date: 20080411
  Receipt Date: 20080408
  Transmission Date: 20081010
  Serious: Yes (Life-Threatening, Hospitalization, Other)
  Sender: FDA-Public Use
  Company Number: HU-BRISTOL-MYERS SQUIBB COMPANY-14143598

PATIENT
  Age: 72 Year
  Sex: Female

DRUGS (8)
  1. CISPLATIN [Suspect]
     Indication: METASTATIC GASTRIC CANCER
     Dosage: (CYCLE 1-3) STARTED FORM 01JAN07-UNK;THERAPY DURATION - 21 DAYS
     Route: 041
     Dates: start: 20070326, end: 20070326
  2. S-1 [Suspect]
     Indication: METASTATIC GASTRIC CANCER
     Dosage: CYCLE 1-3 TAKEN FROM 01JAN07
     Route: 048
     Dates: start: 20070326, end: 20070415
  3. LAEVOLAC [Concomitant]
     Indication: CONSTIPATION
     Route: 048
     Dates: start: 20070108
  4. NORVASC [Concomitant]
     Indication: HYPERTENSION
     Route: 048
     Dates: start: 19970101, end: 20070423
  5. ENALAPRIL MALEATE [Concomitant]
     Indication: HYPERTENSION
     Route: 048
     Dates: start: 20070423
  6. COVEREX [Concomitant]
     Indication: EXTRAPYRAMIDAL DISORDER
     Route: 048
     Dates: start: 19970101, end: 20070423
  7. AMLODIPINE BESYLATE [Concomitant]
     Indication: HYPERTENSION
     Route: 048
     Dates: start: 20070423
  8. FRAXIPARINE [Concomitant]
     Indication: DEEP VEIN THROMBOSIS
     Route: 058
     Dates: start: 20070423, end: 20070510

REACTIONS (2)
  - DEEP VEIN THROMBOSIS [None]
  - PULMONARY EMBOLISM [None]
